FAERS Safety Report 7291282-X (Version None)
Quarter: 2011Q1

REPORT INFORMATION
  Report Type: 
  Country: None (occurrence: None)
  Receive Date: 20110214
  Receipt Date: 20110203
  Transmission Date: 20110831
  Serious: Yes (Other)
  Sender: FDA-Public Use
  Company Number: US-MYLANLABS-2011S1002347

PATIENT
  Age: 17 Year
  Sex: Male

DRUGS (2)
  1. AMNESTEEM [Suspect]
     Route: 048
     Dates: end: 20110103
  2. AMNESTEEM [Suspect]
     Indication: ACNE
     Route: 048
     Dates: end: 20110103

REACTIONS (5)
  - SUICIDAL IDEATION [None]
  - HEADACHE [None]
  - CRYING [None]
  - ANGER [None]
  - AGITATION [None]
